FAERS Safety Report 4589291-4 (Version None)
Quarter: 2005Q1

REPORT INFORMATION
  Report Type: 
  Country: None (occurrence: None)
  Receive Date: 20050216
  Receipt Date: 20050204
  Transmission Date: 20050727
  Serious: No
  Sender: FDA-Public Use
  Company Number: 2004101111

PATIENT
  Sex: Male

DRUGS (1)
  1. CAVERJECT [Suspect]
     Indication: ERECTILE DYSFUNCTION
     Dosage: INTRACAVERNOSA
     Route: 017
     Dates: start: 20041018

REACTIONS (3)
  - DEVICE FAILURE [None]
  - PENILE PAIN [None]
  - PHARMACEUTICAL PRODUCT COMPLAINT [None]
